FAERS Safety Report 7463727-3 (Version None)
Quarter: 2011Q2

REPORT INFORMATION
  Report Type: 
  Country: None (occurrence: None)
  Receive Date: 20110506
  Receipt Date: 20110322
  Transmission Date: 20111010
  Serious: Yes (Hospitalization, Other)
  Sender: FDA-Public Use
  Company Number: US-BAYER-201012542NA

PATIENT
  Age: 42 Year
  Sex: Female
  Weight: 59.864 kg

DRUGS (15)
  1. HYDROCODONE BITARTRATE + ACETAMINOPHEN [Concomitant]
  2. AGGRENOX [Concomitant]
     Indication: CEREBROVASCULAR ACCIDENT
  3. FLAGYL [Concomitant]
  4. YASMIN [Suspect]
     Indication: PREMENSTRUAL SYNDROME
     Dosage: 1 DF (DAILY DOSE), QD, ORAL
     Route: 048
  5. BUTALBITAL [Concomitant]
     Indication: HEADACHE
     Dosage: UNK
     Dates: start: 20090502, end: 20090502
  6. DIFLUCAN [Concomitant]
     Indication: URINARY TRACT INFECTION
  7. ASPIRIN [Concomitant]
     Dosage: 325 MG, QD
  8. YAZ [Suspect]
     Indication: PREMENSTRUAL SYNDROME
     Dosage: 1 DF (DAILY DOSE), QD, ORAL
     Route: 048
  9. PROZAC [Concomitant]
  10. XANAX [Concomitant]
     Indication: ANXIETY
     Dosage: 0.25 MG, BID
  11. METHIMAZOLE [Concomitant]
  12. AMBIEN CR [Concomitant]
  13. BUTALBITAL ACETAMINOPHEN AND CAFFEINE [Concomitant]
  14. LEVAQUIN [Concomitant]
     Indication: URINARY TRACT INFECTION
  15. PROPRANOLOL [Concomitant]

REACTIONS (2)
  - CEREBROVASCULAR ACCIDENT [None]
  - DEEP VEIN THROMBOSIS [None]
